FAERS Safety Report 17122809 (Version 1)
Quarter: 2019Q4

REPORT INFORMATION
  Report Type: Spontaneous
  Country: US (occurrence: US)
  Receive Date: 20191206
  Receipt Date: 20191206
  Transmission Date: 20200122
  Serious: No
  Sender: FDA-Public Use
  Company Number: US-ROCHE-2325915

PATIENT
  Sex: Female

DRUGS (1)
  1. OCREVUS [Suspect]
     Active Substance: OCRELIZUMAB
     Indication: PRODUCT USED FOR UNKNOWN INDICATION
     Route: 065
     Dates: start: 20180301

REACTIONS (5)
  - Thyroid disorder [Unknown]
  - Hyperhidrosis [Unknown]
  - Hypoacusis [Unknown]
  - Visual impairment [Unknown]
  - Fatigue [Unknown]
